FAERS Safety Report 8204172-2 (Version None)
Quarter: 2012Q1

REPORT INFORMATION
  Report Type: 
  Country: None (occurrence: None)
  Receive Date: 20120313
  Receipt Date: 20120305
  Transmission Date: 20120608
  Serious: Yes (Other)
  Sender: FDA-Public Use
  Company Number: JP-ASTELLAS-2012JP002008

PATIENT
  Sex: Female

DRUGS (6)
  1. FLUDARABINE PHOSPHATE [Concomitant]
     Dosage: 125 MG/M2, UNKNOWN/D
     Route: 065
  2. PROGRAF [Suspect]
     Route: 065
  3. PROGRAF [Suspect]
     Indication: PROPHYLAXIS AGAINST GRAFT VERSUS HOST DISEASE
     Route: 065
  4. METHOTREXATE [Concomitant]
     Indication: PROPHYLAXIS AGAINST GRAFT VERSUS HOST DISEASE
     Route: 065
  5. CYCLOPHOSPHAMIDE [Concomitant]
     Dosage: 120 MG/KG, UNKNOWN/D
     Route: 065
  6. METHOTREXATE [Concomitant]
     Route: 065

REACTIONS (1)
  - CHOLECYSTITIS ACUTE [None]
